FAERS Safety Report 9897535 (Version 3)
Quarter: 2014Q4

REPORT INFORMATION
  Report Type: Spontaneous
  Country: US (occurrence: US)
  Receive Date: 20140214
  Receipt Date: 20141205
  Transmission Date: 20150529
  Serious: Yes (Hospitalization, Other)
  Sender: FDA-Public Use
  Company Number: US-BAYER-2014-023612

PATIENT
  Age: 28 Year
  Sex: Female
  Weight: 61.22 kg

DRUGS (7)
  1. ADVIL [Concomitant]
     Active Substance: IBUPROFEN
     Indication: PYREXIA
  2. MIRENA [Suspect]
     Active Substance: LEVONORGESTREL
     Indication: CONTRACEPTION
     Dosage: 20 MCG/24HR, CONT
     Route: 015
     Dates: start: 20100712, end: 20130208
  3. LORTAB [Concomitant]
     Active Substance: ACETAMINOPHEN\HYDROCODONE BITARTRATE
     Indication: PAIN
  4. ADVIL [Concomitant]
     Active Substance: IBUPROFEN
     Indication: PAIN
     Dosage: 400 MG, PRN
     Route: 048
     Dates: start: 20130208
  5. CLARITIN [Concomitant]
     Active Substance: LORATADINE
     Dosage: UNK
     Dates: start: 20130208
  6. ALBUTEROL. [Concomitant]
     Active Substance: ALBUTEROL
     Indication: ASTHMA
     Dosage: 2 PUFFS, PRN
     Dates: start: 20130208
  7. ALBUTEROL. [Concomitant]
     Active Substance: ALBUTEROL
     Indication: DYSPNOEA

REACTIONS (10)
  - Emotional distress [None]
  - Pain [None]
  - Scar [None]
  - Device failure [None]
  - Anxiety [None]
  - Off label use [None]
  - Injury [None]
  - Procedural pain [None]
  - Uterine perforation [None]
  - Medical device discomfort [None]

NARRATIVE: CASE EVENT DATE: 20130208
